FAERS Safety Report 6970610-6 (Version None)
Quarter: 2010Q3

REPORT INFORMATION
  Report Type: 
  Country: None (occurrence: None)
  Receive Date: 20100908
  Receipt Date: 20100827
  Transmission Date: 20110219
  Serious: Yes (Hospitalization)
  Sender: FDA-Public Use
  Company Number: FR-AMGEN-QUU434251

PATIENT
  Sex: Male

DRUGS (3)
  1. ARANESP [Suspect]
     Indication: RENAL FAILURE CHRONIC
     Route: 058
     Dates: start: 20090908, end: 20091201
  2. EPREX [Suspect]
     Route: 058
     Dates: start: 20081110, end: 20090721
  3. NEORECORMON [Suspect]
     Dates: start: 20090731, end: 20090828

REACTIONS (2)
  - ANAEMIA [None]
  - ANTI-ERYTHROPOIETIN ANTIBODY POSITIVE [None]
